FAERS Safety Report 19474677 (Version 1)
Quarter: 2021Q2

REPORT INFORMATION
  Report Type: Report from Study
  Country: US (occurrence: US)
  Receive Date: 20210630
  Receipt Date: 20210630
  Transmission Date: 20210717
  Serious: Yes (Hospitalization)
  Sender: FDA-Public Use
  Company Number: US-ASTRAZENECA-2021A569964

PATIENT
  Age: 31397 Day
  Sex: Male
  Weight: 85 kg

DRUGS (17)
  1. CALQUENCE [Suspect]
     Active Substance: ACALABRUTINIB
     Indication: CHRONIC LYMPHOCYTIC LEUKAEMIA
     Route: 048
     Dates: start: 20210602
  2. ATIVAN [Concomitant]
     Active Substance: LORAZEPAM
  3. CARAFATE [Concomitant]
     Active Substance: SUCRALFATE
  4. COENZYME Q10 [Concomitant]
     Active Substance: DIETARY SUPPLEMENT\UBIDECARENONE
  5. TYLENOL [Concomitant]
     Active Substance: ACETAMINOPHEN
  6. QUINAPRIL. [Concomitant]
     Active Substance: QUINAPRIL
  7. XARELTO [Concomitant]
     Active Substance: RIVAROXABAN
  8. SENNA LAXATIVE [Concomitant]
     Active Substance: SENNOSIDES
  9. VITAMIN D3 [Concomitant]
     Active Substance: CHOLECALCIFEROL
  10. ALBUTEROL SULFATE HFA [Concomitant]
     Active Substance: ALBUTEROL SULFATE
  11. ARICEPT [Concomitant]
     Active Substance: DONEPEZIL HYDROCHLORIDE
  12. CLONAZEPAM. [Concomitant]
     Active Substance: CLONAZEPAM
  13. FIORICET/CODEINE [Concomitant]
  14. DOCUSATE SODIUM. [Concomitant]
     Active Substance: DOCUSATE SODIUM
  15. NITROGLYCERIN. [Concomitant]
     Active Substance: NITROGLYCERIN
  16. PEPCID [Concomitant]
     Active Substance: FAMOTIDINE
  17. ZOLOFT [Concomitant]
     Active Substance: SERTRALINE HYDROCHLORIDE

REACTIONS (1)
  - Peripheral swelling [Recovering/Resolving]

NARRATIVE: CASE EVENT DATE: 20210621
